FAERS Safety Report 4295810-8 (Version None)
Quarter: 2004Q1

REPORT INFORMATION
  Report Type: 
  Country: None (occurrence: None)
  Receive Date: 20040216
  Receipt Date: 20031111
  Transmission Date: 20041129
  Serious: No
  Sender: FDA-Public Use
  Company Number: US-GLAXOSMITHKLINE-A0439266A

PATIENT
  Age: 30 Year
  Sex: Female
  Weight: 68.2 kg

DRUGS (2)
  1. LAMICTAL [Suspect]
     Indication: BIPOLAR DISORDER
     Dosage: 100MG TWICE PER DAY
     Route: 048
     Dates: start: 20030919, end: 20031107
  2. LITHOBID [Concomitant]
     Dosage: 300MG TWICE PER DAY
     Route: 048
     Dates: start: 20030718

REACTIONS (2)
  - PRURITUS [None]
  - RASH [None]
